FAERS Safety Report 12225000 (Version 1)
Quarter: 2016Q1

REPORT INFORMATION
  Report Type: Spontaneous
  Country: US (occurrence: US)
  Receive Date: 20160331
  Receipt Date: 20160331
  Transmission Date: 20160526
  Serious: No
  Sender: FDA-Public Use
  Company Number: US-009507513-1603USA013368

PATIENT
  Sex: Female

DRUGS (2)
  1. BELSOMRA [Suspect]
     Active Substance: SUVOREXANT
     Dosage: 20MG
  2. BELSOMRA [Suspect]
     Active Substance: SUVOREXANT
     Dosage: 10MG

REACTIONS (1)
  - Night sweats [Recovered/Resolved]
